FAERS Safety Report 21188156 (Version 1)
Quarter: 2022Q3

REPORT INFORMATION
  Report Type: Spontaneous
  Country: US (occurrence: US)
  Receive Date: 20220809
  Receipt Date: 20220809
  Transmission Date: 20221027
  Serious: No
  Sender: FDA-Public Use
  Company Number: US-APOTEX-2022AP007637

PATIENT
  Age: 18 Year
  Sex: Male

DRUGS (1)
  1. SIROLIMUS [Suspect]
     Active Substance: SIROLIMUS
     Indication: Angiosarcoma
     Dosage: UNK
     Route: 065

REACTIONS (2)
  - Nasal discomfort [Unknown]
  - Epistaxis [Unknown]
